FAERS Safety Report 11410907 (Version 2)
Quarter: 2015Q4

REPORT INFORMATION
  Report Type: Report from Study
  Country: US (occurrence: US)
  Receive Date: 20150824
  Receipt Date: 20151109
  Transmission Date: 20160304
  Serious: Yes (Other)
  Sender: FDA-Public Use
  Company Number: US-MYLANLABS-2015M1027929

PATIENT
  Age: 20 Year
  Sex: Female

DRUGS (2)
  1. AMNESTEEM [Suspect]
     Active Substance: ISOTRETINOIN
     Dosage: 40 MG, QD
     Dates: start: 20150603, end: 20150717
  2. ORAL CONTRACEPTIVE NOS [Concomitant]
     Active Substance: UNSPECIFIED INGREDIENT
     Indication: CONTRACEPTION
     Dosage: UNK

REACTIONS (1)
  - Exposure during pregnancy [Not Recovered/Not Resolved]

NARRATIVE: CASE EVENT DATE: 20150704
